FAERS Safety Report 17828067 (Version 1)
Quarter: 2020Q2

REPORT INFORMATION
  Report Type: Spontaneous
  Country: MY (occurrence: MY)
  Receive Date: 20200527
  Receipt Date: 20200527
  Transmission Date: 20200714
  Serious: Yes (Hospitalization)
  Sender: FDA-Public Use
  Company Number: MY-STRIDES ARCOLAB LIMITED-2020SP006209

PATIENT
  Age: 96 Year
  Sex: Male

DRUGS (2)
  1. BISOPROLOL [Suspect]
     Active Substance: BISOPROLOL
     Indication: HYPERTENSION
     Dosage: UNK
     Route: 048
  2. AMLODIPINE [Suspect]
     Active Substance: AMLODIPINE BESYLATE
     Indication: HYPERTENSION
     Dosage: UNK
     Route: 048

REACTIONS (7)
  - Confusional state [Unknown]
  - Dizziness [Unknown]
  - Sinus bradycardia [Unknown]
  - Overdose [Unknown]
  - Peripheral coldness [Unknown]
  - Pulse volume decreased [Unknown]
  - Defect conduction intraventricular [Unknown]
